FAERS Safety Report 8618492 (Version 2)
Quarter: 2013Q2

REPORT INFORMATION
  Report Type: Spontaneous
  Country: US (occurrence: US)
  Receive Date: 20120618
  Receipt Date: 20130617
  Transmission Date: 20140414
  Serious: Yes (Hospitalization, Disabling)
  Sender: FDA-Public Use
  Company Number: US-ASTRAZENECA-2012SE36455

PATIENT
  Age: 38 Year
  Sex: Female
  Weight: 118.8 kg

DRUGS (9)
  1. NEXIUM [Suspect]
     Indication: GASTROOESOPHAGEAL REFLUX DISEASE
     Route: 048
  2. NEXIUM [Suspect]
     Indication: DYSPEPSIA
     Route: 048
  3. NEXIUM [Suspect]
     Indication: GASTROOESOPHAGEAL REFLUX DISEASE
     Route: 048
  4. NEXIUM [Suspect]
     Indication: DYSPEPSIA
     Route: 048
  5. SIMVASTATIN [Concomitant]
     Indication: CEREBROVASCULAR ACCIDENT
  6. SIMVASTATIN [Concomitant]
     Indication: PROPHYLAXIS
  7. BUMETANIDE [Concomitant]
     Indication: FLUID OVERLOAD
  8. LOSARTAN HCTZ [Concomitant]
     Indication: BLOOD PRESSURE ABNORMAL
     Dosage: 50-125 MG
  9. COREG CR [Concomitant]
     Indication: CARDIAC DISORDER

REACTIONS (15)
  - Breast cancer [Unknown]
  - Influenza [Unknown]
  - Pneumonia [Unknown]
  - Cholelithiasis [Unknown]
  - Abdominal pain [Unknown]
  - Osteoporosis [Unknown]
  - Foot fracture [Unknown]
  - Gastrointestinal disorder [Unknown]
  - Appendix disorder [Unknown]
  - Ankle fracture [Unknown]
  - Arthritis [Unknown]
  - Diabetes mellitus [Unknown]
  - Muscle spasms [Unknown]
  - Bone disorder [Unknown]
  - Depression [Unknown]
